FAERS Safety Report 15992036 (Version 1)
Quarter: 2019Q1

REPORT INFORMATION
  Report Type: Report from Study
  Country: IN (occurrence: IN)
  Receive Date: 20190221
  Receipt Date: 20190221
  Transmission Date: 20190418
  Serious: Yes (Death, Other)
  Sender: FDA-Public Use
  Company Number: IN-JNJFOC-20190221346

PATIENT

DRUGS (56)
  1. GOLIMUMAB [Suspect]
     Active Substance: GOLIMUMAB
     Indication: JUVENILE IDIOPATHIC ARTHRITIS
     Route: 058
  2. ETANERCEPT [Suspect]
     Active Substance: ETANERCEPT
     Indication: IMMUNOGLOBULIN G4 RELATED DISEASE
     Route: 065
  3. ADALIMUMAB [Suspect]
     Active Substance: ADALIMUMAB
     Indication: SPONDYLITIS
     Route: 065
  4. SECUKINUMAB. [Suspect]
     Active Substance: SECUKINUMAB
     Indication: PSORIATIC ARTHROPATHY
     Route: 065
  5. SECUKINUMAB. [Suspect]
     Active Substance: SECUKINUMAB
     Indication: IMMUNOGLOBULIN G4 RELATED DISEASE
     Route: 065
  6. INFLIXIMAB, RECOMBINANT [Suspect]
     Active Substance: INFLIXIMAB
     Indication: IMMUNOGLOBULIN G4 RELATED DISEASE
     Route: 042
  7. ETANERCEPT [Suspect]
     Active Substance: ETANERCEPT
     Indication: JUVENILE IDIOPATHIC ARTHRITIS
     Route: 065
  8. TOCILIZUMAB. [Suspect]
     Active Substance: TOCILIZUMAB
     Indication: JUVENILE IDIOPATHIC ARTHRITIS
     Route: 065
  9. INFLIXIMAB, RECOMBINANT [Suspect]
     Active Substance: INFLIXIMAB
     Indication: SPONDYLITIS
     Route: 042
  10. ETANERCEPT [Suspect]
     Active Substance: ETANERCEPT
     Indication: VASCULITIS
     Route: 065
  11. SECUKINUMAB. [Suspect]
     Active Substance: SECUKINUMAB
     Indication: CONNECTIVE TISSUE DISORDER
     Route: 065
  12. TOCILIZUMAB. [Suspect]
     Active Substance: TOCILIZUMAB
     Indication: VASCULITIS
     Route: 065
  13. INFLIXIMAB, RECOMBINANT [Suspect]
     Active Substance: INFLIXIMAB
     Indication: VASCULITIS
     Route: 042
  14. INFLIXIMAB, RECOMBINANT [Suspect]
     Active Substance: INFLIXIMAB
     Indication: CONNECTIVE TISSUE DISORDER
     Route: 042
  15. GOLIMUMAB [Suspect]
     Active Substance: GOLIMUMAB
     Indication: RHEUMATOID ARTHRITIS
     Route: 058
  16. GOLIMUMAB [Suspect]
     Active Substance: GOLIMUMAB
     Indication: SJOGREN^S SYNDROME
     Route: 058
  17. ETANERCEPT [Suspect]
     Active Substance: ETANERCEPT
     Indication: RHEUMATOID ARTHRITIS
     Route: 065
  18. ETANERCEPT [Suspect]
     Active Substance: ETANERCEPT
     Indication: SPONDYLITIS
     Route: 065
  19. ADALIMUMAB [Suspect]
     Active Substance: ADALIMUMAB
     Indication: VASCULITIS
     Route: 065
  20. TOCILIZUMAB. [Suspect]
     Active Substance: TOCILIZUMAB
     Indication: RHEUMATOID ARTHRITIS
     Route: 065
  21. TOCILIZUMAB. [Suspect]
     Active Substance: TOCILIZUMAB
     Indication: PSORIATIC ARTHROPATHY
     Route: 065
  22. TOCILIZUMAB. [Suspect]
     Active Substance: TOCILIZUMAB
     Indication: SJOGREN^S SYNDROME
     Route: 065
  23. TOCILIZUMAB. [Suspect]
     Active Substance: TOCILIZUMAB
     Indication: IMMUNOGLOBULIN G4 RELATED DISEASE
     Route: 065
  24. ABATACEPT [Suspect]
     Active Substance: ABATACEPT
     Indication: PSORIATIC ARTHROPATHY
     Route: 065
  25. INFLIXIMAB, RECOMBINANT [Suspect]
     Active Substance: INFLIXIMAB
     Indication: RHEUMATOID ARTHRITIS
     Route: 042
  26. INFLIXIMAB, RECOMBINANT [Suspect]
     Active Substance: INFLIXIMAB
     Indication: JUVENILE IDIOPATHIC ARTHRITIS
     Route: 042
  27. GOLIMUMAB [Suspect]
     Active Substance: GOLIMUMAB
     Indication: VASCULITIS
     Route: 058
  28. GOLIMUMAB [Suspect]
     Active Substance: GOLIMUMAB
     Indication: CONNECTIVE TISSUE DISORDER
     Route: 058
  29. ADALIMUMAB [Suspect]
     Active Substance: ADALIMUMAB
     Indication: CONNECTIVE TISSUE DISORDER
     Route: 065
  30. ADALIMUMAB [Suspect]
     Active Substance: ADALIMUMAB
     Indication: IMMUNOGLOBULIN G4 RELATED DISEASE
     Route: 065
  31. SECUKINUMAB. [Suspect]
     Active Substance: SECUKINUMAB
     Indication: RHEUMATOID ARTHRITIS
     Route: 065
  32. SECUKINUMAB. [Suspect]
     Active Substance: SECUKINUMAB
     Indication: SPONDYLITIS
     Route: 065
  33. ABATACEPT [Suspect]
     Active Substance: ABATACEPT
     Indication: RHEUMATOID ARTHRITIS
     Route: 065
  34. ABATACEPT [Suspect]
     Active Substance: ABATACEPT
     Indication: CONNECTIVE TISSUE DISORDER
     Route: 065
  35. INFLIXIMAB, RECOMBINANT [Suspect]
     Active Substance: INFLIXIMAB
     Indication: PSORIATIC ARTHROPATHY
     Route: 042
  36. INFLIXIMAB, RECOMBINANT [Suspect]
     Active Substance: INFLIXIMAB
     Indication: SJOGREN^S SYNDROME
     Route: 042
  37. GOLIMUMAB [Suspect]
     Active Substance: GOLIMUMAB
     Indication: SPONDYLITIS
     Route: 058
  38. GOLIMUMAB [Suspect]
     Active Substance: GOLIMUMAB
     Indication: IMMUNOGLOBULIN G4 RELATED DISEASE
     Route: 058
  39. ADALIMUMAB [Suspect]
     Active Substance: ADALIMUMAB
     Indication: JUVENILE IDIOPATHIC ARTHRITIS
     Route: 065
  40. SECUKINUMAB. [Suspect]
     Active Substance: SECUKINUMAB
     Indication: JUVENILE IDIOPATHIC ARTHRITIS
     Route: 065
  41. ABATACEPT [Suspect]
     Active Substance: ABATACEPT
     Indication: JUVENILE IDIOPATHIC ARTHRITIS
     Route: 065
  42. ETANERCEPT [Suspect]
     Active Substance: ETANERCEPT
     Indication: PSORIATIC ARTHROPATHY
     Route: 065
  43. SECUKINUMAB. [Suspect]
     Active Substance: SECUKINUMAB
     Indication: VASCULITIS
     Route: 065
  44. ABATACEPT [Suspect]
     Active Substance: ABATACEPT
     Indication: SJOGREN^S SYNDROME
     Route: 065
  45. GOLIMUMAB [Suspect]
     Active Substance: GOLIMUMAB
     Indication: PSORIATIC ARTHROPATHY
     Route: 058
  46. ETANERCEPT [Suspect]
     Active Substance: ETANERCEPT
     Indication: CONNECTIVE TISSUE DISORDER
     Route: 065
  47. ETANERCEPT [Suspect]
     Active Substance: ETANERCEPT
     Indication: SJOGREN^S SYNDROME
     Route: 065
  48. ADALIMUMAB [Suspect]
     Active Substance: ADALIMUMAB
     Indication: RHEUMATOID ARTHRITIS
     Route: 065
  49. ADALIMUMAB [Suspect]
     Active Substance: ADALIMUMAB
     Indication: PSORIATIC ARTHROPATHY
     Route: 065
  50. ADALIMUMAB [Suspect]
     Active Substance: ADALIMUMAB
     Indication: SJOGREN^S SYNDROME
     Route: 065
  51. SECUKINUMAB. [Suspect]
     Active Substance: SECUKINUMAB
     Indication: SJOGREN^S SYNDROME
     Route: 065
  52. TOCILIZUMAB. [Suspect]
     Active Substance: TOCILIZUMAB
     Indication: SPONDYLITIS
     Route: 065
  53. TOCILIZUMAB. [Suspect]
     Active Substance: TOCILIZUMAB
     Indication: CONNECTIVE TISSUE DISORDER
     Route: 065
  54. ABATACEPT [Suspect]
     Active Substance: ABATACEPT
     Indication: SPONDYLITIS
     Route: 065
  55. ABATACEPT [Suspect]
     Active Substance: ABATACEPT
     Indication: VASCULITIS
     Route: 065
  56. ABATACEPT [Suspect]
     Active Substance: ABATACEPT
     Indication: IMMUNOGLOBULIN G4 RELATED DISEASE
     Route: 065

REACTIONS (3)
  - Tuberculosis [Fatal]
  - Infection [Fatal]
  - Infusion related reaction [Unknown]
